FAERS Safety Report 6140008-1 (Version None)
Quarter: 2009Q1

REPORT INFORMATION
  Report Type: 
  Country: None (occurrence: None)
  Receive Date: 20090331
  Receipt Date: 20090331
  Transmission Date: 20090719
  Serious: Yes (Other)
  Sender: FDA-Public Use
  Company Number: None

PATIENT
  Age: 38 Year
  Sex: Female
  Weight: 61.2356 kg

DRUGS (2)
  1. ANAPROX [Suspect]
     Indication: INFLAMMATION
     Dosage: ONCE
     Dates: start: 20090317, end: 20090317
  2. ANAPROX [Suspect]
     Indication: INFLAMMATION
     Dosage: ONCE
     Dates: start: 20090327, end: 20090327

REACTIONS (5)
  - ABDOMINAL PAIN UPPER [None]
  - INFLUENZA [None]
  - NAUSEA [None]
  - PYREXIA [None]
  - VOMITING [None]
